FAERS Safety Report 14676300 (Version 1)
Quarter: 2018Q1

REPORT INFORMATION
  Report Type: Spontaneous
  Country: DK (occurrence: DK)
  Receive Date: 20180323
  Receipt Date: 20180323
  Transmission Date: 20180509
  Serious: Yes (Hospitalization)
  Sender: FDA-Public Use
  Company Number: DK-TEVA-2016-15903

PATIENT
  Age: 19 Year
  Sex: Male
  Weight: 54 kg

DRUGS (1)
  1. ISOTRETINOIN ACTAVIS [Suspect]
     Active Substance: ISOTRETINOIN
     Indication: ACNE
     Dosage: DOSAGE: 2 CAPSULES DAILY, STRENGTH: 20 MG
     Route: 048
     Dates: start: 20140919, end: 20150515

REACTIONS (4)
  - Fatigue [Unknown]
  - Malaise [Unknown]
  - Type 1 diabetes mellitus [Not Recovered/Not Resolved]
  - Weight decreased [Unknown]

NARRATIVE: CASE EVENT DATE: 20160401
